FAERS Safety Report 23960568 (Version 3)
Quarter: 2024Q2

REPORT INFORMATION
  Report Type: Spontaneous
  Country: FR (occurrence: FR)
  Receive Date: 20240611
  Receipt Date: 20240620
  Transmission Date: 20240715
  Serious: Yes (Hospitalization)
  Sender: FDA-Public Use
  Company Number: FR-ROCHE-3513902

PATIENT
  Age: 40 Year
  Sex: Female
  Weight: 47 kg

DRUGS (44)
  1. MYCOPHENOLATE MOFETIL [Suspect]
     Active Substance: MYCOPHENOLATE MOFETIL
     Indication: Lupus nephritis
     Dosage: 500 MG: 2 TABLETS MORNING AND EVENING.
     Route: 048
     Dates: start: 20240128
  2. OBINUTUZUMAB [Suspect]
     Active Substance: OBINUTUZUMAB
     Indication: Lupus nephritis
     Dosage: 1000.000MG
     Route: 042
     Dates: start: 20240131, end: 20240131
  3. OBINUTUZUMAB [Suspect]
     Active Substance: OBINUTUZUMAB
     Dosage: 1000.000MG
     Route: 042
     Dates: start: 20240212, end: 20240212
  4. ARANESP [Concomitant]
     Active Substance: DARBEPOETIN ALFA
     Indication: Anaemia
     Dosage: 1 IU/WEEK
     Route: 065
     Dates: start: 20240322
  5. ARANESP [Concomitant]
     Active Substance: DARBEPOETIN ALFA
     Dosage: 1 IU/WEEK
     Route: 065
     Dates: start: 20240322
  6. ARANESP [Concomitant]
     Active Substance: DARBEPOETIN ALFA
     Dosage: 1 IU/WEEK
     Route: 065
     Dates: start: 20240322
  7. CLOBETASOL PROPIONATE [Concomitant]
     Active Substance: CLOBETASOL PROPIONATE
     Indication: Product used for unknown indication
     Dosage: CLARELUX 500 MICROG/G CREAM
     Route: 065
     Dates: start: 20240305
  8. CLOBETASOL PROPIONATE [Concomitant]
     Active Substance: CLOBETASOL PROPIONATE
     Dosage: CLARELUX 500 MICROG/G CREAM
     Route: 065
     Dates: start: 20240305
  9. CLOBETASOL PROPIONATE [Concomitant]
     Active Substance: CLOBETASOL PROPIONATE
     Dosage: CLARELUX 500 MICROG/G CREAM
     Route: 065
     Dates: start: 20240305
  10. CLINDAMYCIN [Concomitant]
     Active Substance: CLINDAMYCIN
     Indication: Product used for unknown indication
     Route: 065
  11. CLINDAMYCIN [Concomitant]
     Active Substance: CLINDAMYCIN
     Indication: Product used for unknown indication
     Route: 065
  12. DOLIPRANE [Concomitant]
     Active Substance: ACETAMINOPHEN
     Indication: Pain
     Dosage: 1.000G
     Route: 065
     Dates: start: 20240322
  13. FOLIC ACID [Concomitant]
     Active Substance: FOLIC ACID
     Indication: Product used for unknown indication
     Dosage: 5.000MG
     Route: 065
     Dates: start: 20240201
  14. FOLIC ACID [Concomitant]
     Active Substance: FOLIC ACID
     Dosage: 5.000MG
     Route: 065
     Dates: start: 20240201
  15. FOLIC ACID [Concomitant]
     Active Substance: FOLIC ACID
     Dosage: 5.000MG
     Route: 065
     Dates: start: 20240201
  16. LOVENOX [Concomitant]
     Active Substance: ENOXAPARIN SODIUM
     Indication: Product used for unknown indication
     Dosage: 4000.000MG
     Route: 065
     Dates: start: 20240129
  17. LOVENOX [Concomitant]
     Active Substance: ENOXAPARIN SODIUM
     Dosage: 4000.000MG
     Route: 065
     Dates: start: 20240129
  18. LOVENOX [Concomitant]
     Active Substance: ENOXAPARIN SODIUM
     Dosage: 4000.000MG
     Route: 065
     Dates: start: 20240129
  19. LOVENOX [Concomitant]
     Active Substance: ENOXAPARIN SODIUM
     Dosage: 4000.000IU
     Route: 065
     Dates: start: 20240119, end: 20240212
  20. LYRICA [Concomitant]
     Active Substance: PREGABALIN
     Indication: Pain
     Dosage: 1 IU/WEEK
     Route: 065
     Dates: start: 20240322
  21. LYRICA [Concomitant]
     Active Substance: PREGABALIN
     Dosage: 150.000MG
     Route: 065
     Dates: start: 20240514
  22. ACETAMINOPHEN [Concomitant]
     Active Substance: ACETAMINOPHEN
     Indication: Product used for unknown indication
     Dosage: 1.000G
     Route: 065
     Dates: start: 20240322
  23. ACETAMINOPHEN [Concomitant]
     Active Substance: ACETAMINOPHEN
     Indication: Pain
     Route: 065
  24. PLAQUENIL [Concomitant]
     Active Substance: HYDROXYCHLOROQUINE SULFATE
     Indication: Product used for unknown indication
     Dosage: PLAQUENIL 200 MG: 2 TABLETS IN THE MORNING
     Route: 065
     Dates: start: 20240128
  25. RAMIPRIL [Concomitant]
     Active Substance: RAMIPRIL
     Indication: Product used for unknown indication
     Dosage: 1.200MG
     Route: 065
     Dates: start: 20240203, end: 20240206
  26. RAMIPRIL [Concomitant]
     Active Substance: RAMIPRIL
     Dosage: 1.200MG
     Route: 065
     Dates: start: 20240203, end: 20240206
  27. RAMIPRIL [Concomitant]
     Active Substance: RAMIPRIL
     Dosage: 1.200MG
     Route: 065
     Dates: start: 20240203, end: 20240206
  28. SOLU-MEDROL [Concomitant]
     Active Substance: METHYLPREDNISOLONE SODIUM SUCCINATE
     Dosage: 120.000MG
     Route: 065
     Dates: start: 20240126, end: 20240126
  29. SOLU-MEDROL [Concomitant]
     Active Substance: METHYLPREDNISOLONE SODIUM SUCCINATE
     Dosage: 120.000MG
     Route: 065
     Dates: start: 20240128, end: 20240128
  30. SOLU-MEDROL [Concomitant]
     Active Substance: METHYLPREDNISOLONE SODIUM SUCCINATE
     Dosage: 120.000MG
     Route: 065
     Dates: start: 20240212, end: 20240212
  31. SOLU-MEDROL [Concomitant]
     Active Substance: METHYLPREDNISOLONE SODIUM SUCCINATE
     Dosage: SUBSEQUENT DOSING ON 27/JAN/2024, 28/JAN/2024
     Route: 065
     Dates: start: 20240126
  32. SOLU-MEDROL [Concomitant]
     Active Substance: METHYLPREDNISOLONE SODIUM SUCCINATE
     Dosage: SUBSEQUENT DOSING ON 27/JAN/2024, 28/JAN/2024
     Route: 065
     Dates: start: 20240126
  33. SOLU-MEDROL [Concomitant]
     Active Substance: METHYLPREDNISOLONE SODIUM SUCCINATE
     Indication: Product used for unknown indication
     Dosage: 500.000MG
     Route: 065
     Dates: start: 20240131
  34. SOLU-MEDROL [Concomitant]
     Active Substance: METHYLPREDNISOLONE SODIUM SUCCINATE
     Dosage: 500.000MG
     Route: 065
     Dates: start: 20240131, end: 20240131
  35. SOLU-MEDROL [Concomitant]
     Active Substance: METHYLPREDNISOLONE SODIUM SUCCINATE
     Dosage: 500.000MG
     Route: 065
     Dates: start: 20240131
  36. SOLU-MEDROL [Concomitant]
     Active Substance: METHYLPREDNISOLONE SODIUM SUCCINATE
     Route: 065
     Dates: start: 20240127, end: 20240127
  37. VALACYCLOVIR HYDROCHLORIDE [Concomitant]
     Active Substance: VALACYCLOVIR HYDROCHLORIDE
     Indication: Pain
     Dosage: 3000 MG
     Route: 065
     Dates: start: 20240514
  38. VALACYCLOVIR HYDROCHLORIDE [Concomitant]
     Active Substance: VALACYCLOVIR HYDROCHLORIDE
     Dosage: 3000.000MG
     Route: 065
     Dates: start: 20240514
  39. ALFUZOSIN [Concomitant]
     Active Substance: ALFUZOSIN
     Indication: Product used for unknown indication
     Dosage: 10.000MG
     Route: 065
     Dates: start: 20240311
  40. ALFUZOSIN [Concomitant]
     Active Substance: ALFUZOSIN
     Dosage: 10.000MG
     Route: 065
     Dates: start: 20240311
  41. ALFUZOSIN [Concomitant]
     Active Substance: ALFUZOSIN
     Dosage: 10.000MG
     Route: 065
     Dates: start: 20240311
  42. CHOLECALCIFEROL [Concomitant]
     Active Substance: CHOLECALCIFEROL
     Indication: Product used for unknown indication
     Dosage: 50000.000IU
     Route: 065
  43. CHOLECALCIFEROL [Concomitant]
     Active Substance: CHOLECALCIFEROL
     Dosage: 50000.000IU
     Route: 065
  44. CHOLECALCIFEROL [Concomitant]
     Active Substance: CHOLECALCIFEROL
     Dosage: 50000.000IU
     Route: 065

REACTIONS (5)
  - Complication associated with device [Not Recovered/Not Resolved]
  - Acute kidney injury [Recovered/Resolved]
  - Post lumbar puncture syndrome [Recovered/Resolved]
  - Pyelonephritis [Recovered/Resolved]
  - Herpes zoster [Recovered/Resolved]

NARRATIVE: CASE EVENT DATE: 20240207
